FAERS Safety Report 19686351 (Version 1)
Quarter: 2021Q3

REPORT INFORMATION
  Report Type: Report from Study
  Country: US (occurrence: US)
  Receive Date: 20210811
  Receipt Date: 20210811
  Transmission Date: 20211014
  Serious: Yes (Other)
  Sender: FDA-Public Use
  Company Number: US-INGENUS PHARMACEUTICALS, LLC-2021INF000117

PATIENT
  Age: 36 Year
  Sex: Female

DRUGS (1)
  1. CABERGOLINE. [Suspect]
     Active Substance: CABERGOLINE
     Indication: PROLACTIN-PRODUCING PITUITARY TUMOUR
     Dosage: UNK
     Route: 065

REACTIONS (4)
  - Eye pain [Unknown]
  - Empty sella syndrome [Unknown]
  - Visual field defect [Recovered/Resolved]
  - Photophobia [Unknown]
